FAERS Safety Report 6014135-3 (Version None)
Quarter: 2008Q4

REPORT INFORMATION
  Report Type: 
  Country: None (occurrence: None)
  Receive Date: 20081219
  Receipt Date: 20080414
  Transmission Date: 20090506
  Serious: No
  Sender: FDA-Public Use
  Company Number: A0701679A

PATIENT
  Age: 79 Year
  Sex: Male

DRUGS (10)
  1. AVODART [Suspect]
     Indication: BENIGN PROSTATIC HYPERPLASIA
     Dosage: .5MG PER DAY
     Route: 048
     Dates: start: 20070101
  2. NEURONTIN [Concomitant]
  3. BETAPACE [Concomitant]
  4. COUMADIN [Concomitant]
  5. TRAZODONE HCL [Concomitant]
  6. FLOMAX [Concomitant]
  7. PRILOSEC [Concomitant]
  8. AMARYL [Concomitant]
  9. METFORMIN HCL [Concomitant]
  10. TESTOSTERONE SHOT [Concomitant]

REACTIONS (5)
  - DIARRHOEA [None]
  - DRUG ADMINISTRATION ERROR [None]
  - MEDICATION RESIDUE [None]
  - NASOPHARYNGITIS [None]
  - PRODUCT QUALITY ISSUE [None]
